FAERS Safety Report 24991724 (Version 1)
Quarter: 2025Q1

REPORT INFORMATION
  Report Type: Spontaneous
  Country: FR (occurrence: FR)
  Receive Date: 20250220
  Receipt Date: 20250220
  Transmission Date: 20250409
  Serious: Yes (Hospitalization)
  Sender: MYLAN
  Company Number: FR-ROCHE-3511441

PATIENT
  Age: 60 Year
  Sex: Male
  Weight: 52 kg

DRUGS (22)
  1. PREDNISONE [Suspect]
     Active Substance: PREDNISONE
     Indication: Diffuse large B-cell lymphoma
     Dosage: 100 MILLIGRAM, Q3W
     Route: 048
     Dates: start: 20231228
  2. GLOFITAMAB [Suspect]
     Active Substance: GLOFITAMAB
     Indication: Diffuse large B-cell lymphoma
     Dosage: 2.5 MILLIGRAM, QD
     Route: 042
     Dates: start: 20240125
  3. GLOFITAMAB [Suspect]
     Active Substance: GLOFITAMAB
     Route: 042
     Dates: start: 20240214
  4. CYCLOPHOSPHAMIDE [Suspect]
     Active Substance: CYCLOPHOSPHAMIDE
     Indication: Diffuse large B-cell lymphoma
     Dosage: 1280 MILLIGRAM, Q3W
     Route: 042
     Dates: start: 20231228
  5. CYCLOPHOSPHAMIDE [Suspect]
     Active Substance: CYCLOPHOSPHAMIDE
     Route: 042
     Dates: start: 202402
  6. DOXORUBICIN [Suspect]
     Active Substance: DOXORUBICIN
     Indication: Diffuse large B-cell lymphoma
     Dosage: 86 MILLIGRAM, Q3W (ON 07-FEB-2024 HE RECEIVED THE MOST RECENT DOSE OF 86MG PRIOR TO THE EVENT)
     Route: 042
     Dates: start: 20231228
  7. FILGRASTIM [Concomitant]
     Active Substance: FILGRASTIM
     Dosage: 34 INTERNATIONAL UNIT, QD
     Route: 058
     Dates: start: 20240125, end: 20240129
  8. PIPERACILLIN SODIUM\TAZOBACTAM SODIUM [Concomitant]
     Active Substance: PIPERACILLIN SODIUM\TAZOBACTAM SODIUM
     Dosage: 4 GRAM, QD
     Route: 042
     Dates: start: 20240214, end: 20240216
  9. DEXAMETHASONE [Concomitant]
     Active Substance: DEXAMETHASONE
     Dosage: 20 MILLIGRAM, QD
     Route: 042
     Dates: start: 20240125, end: 20240125
  10. DEXAMETHASONE [Concomitant]
     Active Substance: DEXAMETHASONE
     Dosage: 20 MILLIGRAM, QD
     Route: 042
     Dates: start: 20240131, end: 20240131
  11. DEXAMETHASONE [Concomitant]
     Active Substance: DEXAMETHASONE
     Dosage: 20 MILLIGRAM, QD
     Route: 042
     Dates: start: 20240214, end: 20240214
  12. DEXAMETHASONE [Concomitant]
     Active Substance: DEXAMETHASONE
     Dosage: 10 MILLIGRAM, BID
     Route: 042
     Dates: start: 20240215, end: 20240215
  13. VALACYCLOVIR HYDROCHLORIDE [Concomitant]
     Active Substance: VALACYCLOVIR HYDROCHLORIDE
     Dosage: 500 MILLIGRAM, BID
     Route: 042
     Dates: start: 20231228
  14. BACTRIM [Concomitant]
     Active Substance: SULFAMETHOXAZOLE\TRIMETHOPRIM
     Route: 048
     Dates: start: 20231228
  15. RITUXIMAB [Concomitant]
     Active Substance: RITUXIMAB
     Indication: Diffuse large B-cell lymphoma
     Dosage: 640 MILLIGRAM, 3XW (0.33 WEEK, (START DATE OF MOST RECENT DOSE OF STUDY DRUG PRIOR TO AE/SAE: 07-FEB
     Route: 042
     Dates: start: 20231228
  16. POLATUZUMAB VEDOTIN [Concomitant]
     Active Substance: POLATUZUMAB VEDOTIN
     Indication: Diffuse large B-cell lymphoma
     Dosage: 100 MILLIGRAM, Q3W (ON 07/FEB/2024, HE RECEIVED MOST RECENT DOSE OF 100 MG. STUDY DRUG PRIOR TO AE/S
     Route: 042
     Dates: start: 20231229
  17. GRANULOCYTES [Concomitant]
     Active Substance: GRANULOCYTES
     Dosage: 34 INTERNATIONAL UNIT, QD
     Route: 058
     Dates: start: 20240213, end: 20240214
  18. POLYETHYLENE GLYCOLS [Concomitant]
     Active Substance: POLYETHYLENE GLYCOLS
     Indication: Constipation
     Route: 048
     Dates: start: 20240125, end: 20240202
  19. NEFOPAM [Concomitant]
     Active Substance: NEFOPAM
     Indication: Constipation
     Route: 042
     Dates: start: 20240125, end: 20240125
  20. CEFEPIME [Concomitant]
     Active Substance: CEFEPIME HYDROCHLORIDE
     Indication: Constipation
     Route: 042
     Dates: start: 20240202, end: 20240206
  21. CEFEPIME [Concomitant]
     Active Substance: CEFEPIME HYDROCHLORIDE
     Route: 042
     Dates: start: 20240127, end: 20240129
  22. FILGRASTIM [Concomitant]
     Active Substance: FILGRASTIM
     Dosage: UNK, QD
     Route: 042
     Dates: start: 20240215, end: 20240216

REACTIONS (1)
  - Cytokine release syndrome [Recovered/Resolved]

NARRATIVE: CASE EVENT DATE: 20240214
